FAERS Safety Report 8484033-4 (Version None)
Quarter: 2012Q2

REPORT INFORMATION
  Report Type: 
  Country: None (occurrence: None)
  Receive Date: 20120627
  Receipt Date: 20120627
  Transmission Date: 20120825
  Serious: Yes (Other)
  Sender: FDA-Public Use
  Company Number: None

PATIENT
  Sex: Female

DRUGS (2)
  1. CIMZIA [Suspect]
     Indication: CROHN'S DISEASE
     Dosage: 400MG EVERY 4 WEEKS SUBCUTANEOUSLY
     Route: 058
     Dates: start: 20110801
  2. CIMZIA [Suspect]
     Indication: CROHN'S DISEASE
     Dosage: 400MG EVERY 4 WEEKS SUBCUTANEOUSLY
     Route: 058
     Dates: start: 20120509

REACTIONS (5)
  - SKIN DISORDER [None]
  - ERYTHEMA [None]
  - DRY SKIN [None]
  - PAIN OF SKIN [None]
  - SKIN BURNING SENSATION [None]
